FAERS Safety Report 26028361 (Version 1)
Quarter: 2025Q4

REPORT INFORMATION
  Report Type: Spontaneous
  Country: EU (occurrence: None)
  Receive Date: 20251111
  Receipt Date: 20251111
  Transmission Date: 20260117
  Serious: Yes (Hospitalization, Other)
  Sender: B. BRAUN MEDICAL INC.
  Company Number: None

PATIENT
  Age: 67 Year
  Sex: Male

DRUGS (11)
  1. LINEZOLID [Suspect]
     Active Substance: LINEZOLID
     Indication: Clostridium difficile infection
     Dosage: UNKNOWN
  2. LINEZOLID [Suspect]
     Active Substance: LINEZOLID
     Indication: Staphylococcal sepsis
  3. PIPERACILLIN AND TAZOBACTAM [Suspect]
     Active Substance: PIPERACILLIN SODIUM\TAZOBACTAM SODIUM
     Indication: Clostridium difficile infection
     Dosage: UNKNOWN
  4. PIPERACILLIN AND TAZOBACTAM [Suspect]
     Active Substance: PIPERACILLIN SODIUM\TAZOBACTAM SODIUM
     Indication: Staphylococcal sepsis
  5. LEVOFLOXACIN [Suspect]
     Active Substance: LEVOFLOXACIN
     Indication: Clostridium difficile infection
     Dosage: UNKNOWN
  6. LEVOFLOXACIN [Suspect]
     Active Substance: LEVOFLOXACIN
     Indication: Staphylococcal sepsis
  7. CLINDAMYCIN [Suspect]
     Active Substance: CLINDAMYCIN
     Indication: Clostridium difficile infection
     Dosage: UNKNOWN
  8. CLINDAMYCIN [Suspect]
     Active Substance: CLINDAMYCIN
     Indication: Staphylococcal sepsis
  9. VANCOMYCIN [Suspect]
     Active Substance: VANCOMYCIN
     Indication: Clostridium difficile colitis
     Dosage: UNK
  10. VANCOMYCIN [Suspect]
     Active Substance: VANCOMYCIN
     Indication: Staphylococcal sepsis
     Dosage: UNK
  11. FIDAXOMICIN [Suspect]
     Active Substance: FIDAXOMICIN
     Indication: Clostridium difficile colitis

REACTIONS (2)
  - Clostridium difficile colitis [Unknown]
  - Megacolon [Unknown]
